FAERS Safety Report 17435259 (Version 1)
Quarter: 2020Q1

REPORT INFORMATION
  Report Type: Spontaneous
  Country: US (occurrence: US)
  Receive Date: 20200219
  Receipt Date: 20200219
  Transmission Date: 20200409
  Serious: Yes (Other)
  Sender: FDA-Public Use
  Company Number: US-KYOWAKIRIN-2020BKK002223

PATIENT

DRUGS (1)
  1. CRYSVITA [Suspect]
     Active Substance: BUROSUMAB-TWZA
     Indication: PRODUCT USED FOR UNKNOWN INDICATION
     Dosage: 60 MG, EVERY 4 WEEKS
     Route: 058
     Dates: start: 20190419, end: 201912

REACTIONS (2)
  - Blood parathyroid hormone increased [Recovering/Resolving]
  - Hyperparathyroidism [Unknown]

NARRATIVE: CASE EVENT DATE: 201912
